FAERS Safety Report 4787131-1 (Version None)
Quarter: 2005Q3

REPORT INFORMATION
  Report Type: 
  Country: None (occurrence: None)
  Receive Date: 20050927
  Receipt Date: 20050622
  Transmission Date: 20060218
  Serious: No
  Sender: FDA-Public Use
  Company Number: USA0506101092

PATIENT
  Sex: Male

DRUGS (2)
  1. STRATTERA [Suspect]
     Indication: ATTENTION DEFICIT/HYPERACTIVITY DISORDER
     Dosage: 35 MG
     Dates: start: 20050501
  2. ZYRTEC [Concomitant]

REACTIONS (3)
  - DYSURIA [None]
  - EARLY MORNING AWAKENING [None]
  - PROSTATITIS [None]
